FAERS Safety Report 6587820-2 (Version None)
Quarter: 2010Q1

REPORT INFORMATION
  Report Type: 
  Country: None (occurrence: None)
  Receive Date: 20100218
  Receipt Date: 20100212
  Transmission Date: 20100710
  Serious: Yes (Hospitalization, Other)
  Sender: FDA-Public Use
  Company Number: PHHY2010US08398

PATIENT
  Sex: Female

DRUGS (1)
  1. EXELON [Suspect]
     Dosage: 9 MG
     Route: 062

REACTIONS (3)
  - ABNORMAL DREAMS [None]
  - ANXIETY [None]
  - MENTAL STATUS CHANGES [None]
